FAERS Safety Report 21563276 (Version 1)
Quarter: 2022Q4

REPORT INFORMATION
  Report Type: Report from Study
  Country: US (occurrence: US)
  Receive Date: 20221107
  Receipt Date: 20221107
  Transmission Date: 20230112
  Serious: No
  Sender: FDA-Public Use
  Company Number: US-ABBVIE-22K-163-4526596-00

PATIENT
  Sex: Female

DRUGS (6)
  1. IMBRUVICA [Suspect]
     Active Substance: IBRUTINIB
     Indication: Chronic lymphocytic leukaemia
     Route: 048
  2. IMBRUVICA [Suspect]
     Active Substance: IBRUTINIB
     Indication: Chronic lymphocytic leukaemia
     Route: 048
  3. Pfizer/BioNTech [Concomitant]
     Indication: COVID-19 immunisation
     Dosage: 2ND COVID BOOSTER?FREQUENCY 1 IN ONCE
     Route: 030
     Dates: start: 20220419, end: 20220419
  4. Pfizer/BioNTech [Concomitant]
     Indication: COVID-19 immunisation
     Dosage: 1ST DOSE ?FREQUENCY 1 IN ONCE
     Route: 030
     Dates: start: 20210301, end: 20210301
  5. Pfizer/BioNTech [Concomitant]
     Indication: COVID-19 immunisation
     Dosage: 2ND DOSE?FREQUENCY 1 IN ONCE
     Route: 030
     Dates: start: 20210322, end: 20210322
  6. Pfizer/BioNTech [Concomitant]
     Indication: COVID-19 immunisation
     Dosage: 1ST COVID BOOSTER?FREQUENCY 1 IN ONCE
     Route: 030
     Dates: start: 20210818, end: 20210818

REACTIONS (3)
  - Increased tendency to bruise [Recovered/Resolved]
  - Acne [Recovered/Resolved]
  - Fatigue [Recovered/Resolved]
